FAERS Safety Report 7718776-4 (Version None)
Quarter: 2011Q3

REPORT INFORMATION
  Report Type: 
  Country: None (occurrence: None)
  Receive Date: 20110830
  Receipt Date: 20110823
  Transmission Date: 20111222
  Serious: Yes (Other)
  Sender: FDA-Public Use
  Company Number: JP-PFIZER INC-2011117907

PATIENT
  Age: 80 Year
  Sex: Male
  Weight: 62 kg

DRUGS (17)
  1. SUTENT [Suspect]
     Dosage: 37.5 MG, 1X/DAY, 2WKS ON/2WKS OFF
     Route: 048
  2. ASPIRIN [Concomitant]
     Indication: MYOCARDIAL INFARCTION
  3. ENALAPRIL MALEATE [Concomitant]
     Indication: HYPERTENSION
  4. NATEGLINIDE [Concomitant]
     Indication: DIABETES MELLITUS
  5. MAGNESIUM OXIDE [Concomitant]
     Indication: CONSTIPATION
  6. SUTENT [Suspect]
     Indication: RENAL CELL CARCINOMA
     Dosage: 25 MG, 1X/DAY
     Route: 048
     Dates: start: 20090210
  7. AMLODIPINE [Concomitant]
     Dosage: 5 MG, 1X/DAY
     Dates: start: 20090824, end: 20090829
  8. SUTENT [Suspect]
     Dosage: 25 MG, 1X/DAY
     Route: 048
     Dates: start: 20091008, end: 20110208
  9. CASODEX [Concomitant]
     Indication: BENIGN PROSTATIC HYPERPLASIA
  10. AMLODIPINE [Concomitant]
     Dosage: 2.5 MG, 1X/DAY
     Dates: start: 20090830
  11. SUTENT [Suspect]
     Dosage: 50 MG, 1X/DAY
     Route: 048
     Dates: start: 20090324, end: 20090409
  12. SUTENT [Suspect]
     Dosage: 37.5 MG, 1X/DAY
     Route: 048
     Dates: start: 20090623, end: 20090823
  13. AMLODIPINE [Concomitant]
     Indication: HYPERTENSION
     Dosage: 2.5 MG, 1X/DAY
     Route: 048
     Dates: end: 20090823
  14. TAMSULOSIN HCL [Concomitant]
     Indication: BENIGN PROSTATIC HYPERPLASIA
  15. FAMOTIDINE [Concomitant]
  16. ISOSORBIDE DINITRATE [Concomitant]
     Indication: MYOCARDIAL INFARCTION
  17. LEVOTHYROXINE SODIUM [Concomitant]
     Indication: HYPOTHYROIDISM
     Dosage: 1X/DAY
     Dates: start: 20090422

REACTIONS (1)
  - ANGINA UNSTABLE [None]
